FAERS Safety Report 6164447-8 (Version None)
Quarter: 2009Q2

REPORT INFORMATION
  Report Type: 
  Country: None (occurrence: None)
  Receive Date: 20090421
  Receipt Date: 20090414
  Transmission Date: 20091009
  Serious: Yes (Hospitalization)
  Sender: FDA-Public Use
  Company Number: 1000005168

PATIENT
  Age: 88 Year
  Sex: Female

DRUGS (5)
  1. BYSTOLIC [Suspect]
     Indication: CARDIAC FAILURE CONGESTIVE
     Dosage: 5 MG (5 MG, 1 IN 1 D), ORAL
     Route: 048
     Dates: start: 20090226, end: 20090201
  2. BYSTOLIC [Suspect]
     Indication: TACHYCARDIA
     Dosage: 5 MG (5 MG, 1 IN 1 D), ORAL
     Route: 048
     Dates: start: 20090226, end: 20090201
  3. ZOLOFT [Suspect]
     Indication: DEPRESSION
     Dosage: 50 MG (50 MG), ORAL
     Route: 048
     Dates: start: 20090224
  4. LASIX [Concomitant]
  5. IMDUR [Concomitant]

REACTIONS (2)
  - DRUG INTERACTION [None]
  - HEART RATE DECREASED [None]
